FAERS Safety Report 14027475 (Version 1)
Quarter: 2017Q3

REPORT INFORMATION
  Report Type: Spontaneous
  Country: US (occurrence: US)
  Receive Date: 20170929
  Receipt Date: 20170929
  Transmission Date: 20171128
  Serious: Yes (Other)
  Sender: FDA-Public Use
  Company Number: US-RECKITT BENCKISER HEALTHCARE INT LIMITED-RB-95737-2017

PATIENT
  Age: 61 Year
  Sex: Female

DRUGS (1)
  1. DELSYM [Suspect]
     Active Substance: DEXTROMETHORPHAN
     Indication: VIRAL UPPER RESPIRATORY TRACT INFECTION
     Dosage: 10 ML, SINGLE
     Route: 048
     Dates: start: 20170921

REACTIONS (3)
  - Dyspnoea [Unknown]
  - Headache [Unknown]
  - Drug hypersensitivity [Unknown]

NARRATIVE: CASE EVENT DATE: 20170921
